FAERS Safety Report 12547286 (Version 2)
Quarter: 2017Q1

REPORT INFORMATION
  Report Type: Spontaneous
  Country: US (occurrence: US)
  Receive Date: 20160711
  Receipt Date: 20170119
  Transmission Date: 20170428
  Serious: No
  Sender: FDA-Public Use
  Company Number: US-EGALET US INC-US-2015EGA000706

PATIENT

DRUGS (2)
  1. SPRIX [Suspect]
     Active Substance: KETOROLAC TROMETHAMINE
     Indication: FIBROMYALGIA
     Dosage: 1 DF, EVERY 6-8 HOURS IN EACH NOSTRIL
     Route: 045
     Dates: start: 20151215
  2. AMBIEN [Concomitant]
     Active Substance: ZOLPIDEM TARTRATE
     Indication: PRODUCT USED FOR UNKNOWN INDICATION
     Dosage: 10 MG, QHS

REACTIONS (2)
  - Migraine [Not Recovered/Not Resolved]
  - Off label use [None]

NARRATIVE: CASE EVENT DATE: 20151216
